FAERS Safety Report 19949193 (Version 4)
Quarter: 2023Q2

REPORT INFORMATION
  Report Type: Spontaneous
  Country: US (occurrence: US)
  Receive Date: 20211013
  Receipt Date: 20230425
  Transmission Date: 20230722
  Serious: Yes (Hospitalization, Disabling, Other)
  Sender: FDA-Public Use
  Company Number: US-ORGANON-O2110USA000864

PATIENT
  Sex: Female

DRUGS (2)
  1. SINGULAIR [Suspect]
     Active Substance: MONTELUKAST SODIUM
     Dosage: 1 TAB PO DAILY
     Route: 048
     Dates: start: 2007, end: 2008
  2. SINGULAIR [Suspect]
     Active Substance: MONTELUKAST SODIUM
     Dosage: 1 TAB PO DAILY
     Route: 048
     Dates: start: 2013, end: 2019

REACTIONS (11)
  - Neuropsychiatric symptoms [Not Recovered/Not Resolved]
  - Multiple sclerosis [Unknown]
  - Sleep terror [Not Recovered/Not Resolved]
  - Panic attack [Not Recovered/Not Resolved]
  - Stenosis [Not Recovered/Not Resolved]
  - Tic [Not Recovered/Not Resolved]
  - Anxiety disorder [Not Recovered/Not Resolved]
  - Dysphemia [Not Recovered/Not Resolved]
  - Tremor [Not Recovered/Not Resolved]
  - Hypoaesthesia [Unknown]
  - Asthenia [Unknown]

NARRATIVE: CASE EVENT DATE: 20080101
